FAERS Safety Report 7449746-1 (Version None)
Quarter: 2011Q2

REPORT INFORMATION
  Report Type: 
  Country: None (occurrence: None)
  Receive Date: 20110502
  Receipt Date: 20110418
  Transmission Date: 20111010
  Serious: Yes (Other)
  Sender: FDA-Public Use
  Company Number: US-JNJFOC-20110412247

PATIENT
  Sex: Female

DRUGS (1)
  1. MONONESSA [Suspect]
     Indication: CONTRACEPTION
     Dosage: ETHINYL ESTRADIOL 0.035 MG/NORGESTIMATE 0.25 MG
     Route: 048

REACTIONS (1)
  - THROMBOSIS [None]
